FAERS Safety Report 5489882-2 (Version None)
Quarter: 2007Q4

REPORT INFORMATION
  Report Type: 
  Country: None (occurrence: None)
  Receive Date: 20071018
  Receipt Date: 20071010
  Transmission Date: 20080405
  Serious: Yes (Hospitalization, Other)
  Sender: FDA-Public Use
  Company Number: DE-JNJFOC-20051202585

PATIENT
  Sex: Male
  Weight: 72 kg

DRUGS (3)
  1. TOPAMAX [Suspect]
     Indication: PARTIAL SEIZURES
     Route: 048
     Dates: start: 20050909, end: 20051025
  2. LAMOTRIGINE [Concomitant]
     Route: 065
  3. KEPPRA [Concomitant]
     Route: 048

REACTIONS (4)
  - AMAUROSIS [None]
  - GLAUCOMA [None]
  - OPTIC NERVE INJURY [None]
  - VISUAL ACUITY REDUCED [None]
